FAERS Safety Report 4801504-X (Version None)
Quarter: 2005Q4

REPORT INFORMATION
  Report Type: 
  Country: None (occurrence: None)
  Receive Date: 20051011
  Receipt Date: 20050929
  Transmission Date: 20060501
  Serious: Yes (Death)
  Sender: FDA-Public Use
  Company Number: 2005135741

PATIENT
  Age: 68 Year
  Sex: Male
  Weight: 77.1 kg

DRUGS (4)
  1. ALPRAZOLAM [Suspect]
     Indication: ANXIETY
     Dosage: ORAL
     Route: 048
     Dates: end: 20050201
  2. ANGIOMAX [Suspect]
     Indication: ILL-DEFINED DISORDER
     Dosage: INTRAVENOUS
     Route: 042
     Dates: start: 20040720, end: 20040720
  3. DOLOPHINE HCL [Suspect]
     Indication: ALCOHOL WITHDRAWAL SYNDROME
     Dosage: ORAL
     Route: 048
     Dates: end: 20050201
  4. ONDANSETRON [Suspect]
     Indication: NAUSEA
     Dosage: ORAL
     Route: 048
     Dates: end: 20050201

REACTIONS (5)
  - ANOXIC ENCEPHALOPATHY [None]
  - CARDIO-RESPIRATORY ARREST [None]
  - NAUSEA [None]
  - PAIN [None]
  - SYNCOPE [None]
